FAERS Safety Report 11416835 (Version 8)
Quarter: 2016Q3

REPORT INFORMATION
  Report Type: Report from Study
  Country: CO (occurrence: CO)
  Receive Date: 20150825
  Receipt Date: 20160803
  Transmission Date: 20161109
  Serious: Yes (Other)
  Sender: FDA-Public Use
  Company Number: PHHY2015CO102013

PATIENT
  Age: 54 Year
  Sex: Female
  Weight: 70 kg

DRUGS (8)
  1. LEVOTHYROXINE. [Concomitant]
     Active Substance: LEVOTHYROXINE
     Indication: THYROID DISORDER
     Route: 065
  2. AMITRIPTYLINE [Concomitant]
     Active Substance: AMITRIPTYLINE
     Indication: PRODUCT USED FOR UNKNOWN INDICATION
     Route: 065
  3. SANDOSTATIN LAR DEPOT [Suspect]
     Active Substance: OCTREOTIDE ACETATE
     Dosage: 30 MG, QMO
  4. LOSARTAN. [Concomitant]
     Active Substance: LOSARTAN
     Indication: TENSION
     Route: 065
  5. VERAPAMIL [Concomitant]
     Active Substance: VERAPAMIL HYDROCHLORIDE
     Indication: TENSION
     Route: 065
  6. HYDROCHLOROTHIAZIDE. [Concomitant]
     Active Substance: HYDROCHLOROTHIAZIDE
     Indication: PRODUCT USED FOR UNKNOWN INDICATION
     Route: 065
  7. CALCITRIOL. [Concomitant]
     Active Substance: CALCITRIOL
     Indication: PRODUCT USED FOR UNKNOWN INDICATION
     Route: 065
  8. SANDOSTATIN LAR DEPOT [Suspect]
     Active Substance: OCTREOTIDE ACETATE
     Indication: MULTIPLE ENDOCRINE NEOPLASIA TYPE 1
     Dosage: 20 MG, QMO
     Route: 030
     Dates: start: 20140129

REACTIONS (12)
  - Diarrhoea [Recovered/Resolved]
  - Abdominal discomfort [Unknown]
  - Abdominal pain upper [Recovered/Resolved]
  - Gastritis [Unknown]
  - Burning sensation [Unknown]
  - Malaise [Recovered/Resolved]
  - 5-hydroxyindolacetic acid increased [Unknown]
  - Flatulence [Unknown]
  - Abdominal pain upper [Unknown]
  - Viral infection [Recovered/Resolved]
  - Hepatic neoplasm [Unknown]
  - Vomiting [Recovered/Resolved]

NARRATIVE: CASE EVENT DATE: 20160120
